FAERS Safety Report 5050639-8 (Version None)
Quarter: 2006Q3

REPORT INFORMATION
  Report Type: 
  Country: None (occurrence: None)
  Receive Date: 20060710
  Receipt Date: 20060630
  Transmission Date: 20061208
  Serious: Yes (Hospitalization)
  Sender: FDA-Public Use
  Company Number: 2006RL000245

PATIENT
  Age: 80 Year
  Sex: Female

DRUGS (6)
  1. RYTHMOL [Suspect]
     Indication: DRUG USE FOR UNKNOWN INDICATION
     Dosage: 600 MG; QD; PO
     Route: 048
     Dates: start: 20060505, end: 20060603
  2. ASCORBIC ACID/CACLIUM [Concomitant]
  3. NAFTIDROFURYL [Concomitant]
  4. PREDNISONE [Concomitant]
  5. FLUINDIONE [Concomitant]
  6. OMEPRAZOLE [Concomitant]
     Indication: DRUG USE FOR UNKNOWN INDICATION

REACTIONS (8)
  - DYSARTHRIA [None]
  - DYSGEUSIA [None]
  - FACIAL PALSY [None]
  - HYPERHIDROSIS [None]
  - NAUSEA [None]
  - PARAESTHESIA [None]
  - TREMOR [None]
  - VISUAL DISTURBANCE [None]
